FAERS Safety Report 8955317 (Version 1)
Quarter: 2012Q4

REPORT INFORMATION
  Report Type: 
  Country: US (occurrence: US)
  Receive Date: 20121210
  Receipt Date: 20121210
  Transmission Date: 20130627
  Serious: No
  Sender: FDA-Public Use
  Company Number: US-PFIZER INC-2012310123

PATIENT
  Age: 52 Year
  Sex: Male
  Weight: 95.2 kg

DRUGS (9)
  1. CHANTIX [Suspect]
     Indication: SMOKING CESSATION THERAPY
     Dosage: 1 mg, 1x/day
     Route: 048
     Dates: start: 20121207
  2. ZETIA [Concomitant]
     Dosage: UNK
  3. PLAVIX [Concomitant]
     Dosage: UNK
  4. ALTACE [Concomitant]
     Dosage: UNK
  5. COREG [Concomitant]
     Dosage: UNK
  6. LIPITOR [Concomitant]
     Dosage: UNK
  7. BABY ASPIRIN [Concomitant]
     Dosage: UNK
  8. AMBIEN [Concomitant]
     Dosage: UNK
  9. ANTIVERT [Concomitant]
     Dosage: UNK, as needed

REACTIONS (3)
  - Inappropriate schedule of drug administration [Unknown]
  - Nausea [Not Recovered/Not Resolved]
  - Dizziness [Not Recovered/Not Resolved]
